FAERS Safety Report 12337263 (Version 1)
Quarter: 2016Q2

REPORT INFORMATION
  Report Type: Spontaneous
  Country: US (occurrence: None)
  Receive Date: 20160504
  Receipt Date: 20160504
  Transmission Date: 20160815
  Serious: Yes (Death)
  Sender: FDA-Public Use
  Company Number: None

PATIENT
  Age: 41 Year
  Sex: Male

DRUGS (10)
  1. EXJADE [Suspect]
     Active Substance: DEFERASIROX
     Indication: IRON OVERLOAD
     Route: 048
     Dates: start: 201205, end: 201604
  2. MULTI VITAMIN [Concomitant]
     Active Substance: VITAMINS
  3. PREVACID [Concomitant]
     Active Substance: LANSOPRAZOLE
  4. CLOZARIL [Concomitant]
     Active Substance: CLOZAPINE
  5. DEPAKOTE [Concomitant]
     Active Substance: DIVALPROEX SODIUM
  6. REGLAN [Concomitant]
     Active Substance: METOCLOPRAMIDE HYDROCHLORIDE
  7. LISINOPRIL. [Concomitant]
     Active Substance: LISINOPRIL
  8. IBUPROFEN. [Concomitant]
     Active Substance: IBUPROFEN
  9. HYDROXYUREA. [Concomitant]
     Active Substance: HYDROXYUREA
  10. BACLOFEN. [Concomitant]
     Active Substance: BACLOFEN

REACTIONS (1)
  - Death [None]

NARRATIVE: CASE EVENT DATE: 201604
